FAERS Safety Report 23815063 (Version 1)
Quarter: 2024Q2

REPORT INFORMATION
  Report Type: Spontaneous
  Country: US (occurrence: None)
  Receive Date: 20240502
  Receipt Date: 20240502
  Transmission Date: 20240716
  Serious: Yes (Hospitalization)
  Sender: FDA-Public Use
  Company Number: None

PATIENT
  Age: 66 Year
  Sex: Male
  Weight: 103.95 kg

DRUGS (12)
  1. LENVIMA [Suspect]
     Active Substance: LENVATINIB
     Indication: Renal cell carcinoma
     Dosage: 1 DF DAILY ORAL?
     Route: 048
     Dates: start: 20240131, end: 20240501
  2. KEYTRUDA [Suspect]
     Active Substance: PEMBROLIZUMAB
     Dosage: 200 MG EVERY 3 WEEKS INTRAVENOUS
     Route: 042
  3. docusate 100mg daily [Concomitant]
  4. zocor 20mg daily [Concomitant]
  5. lisinopril 5mg daily [Concomitant]
  6. claritin 10mg daily [Concomitant]
  7. metformin 500mg daily [Concomitant]
  8. ibuprofen 800mg q8h prn [Concomitant]
  9. ozempic 0.5mg weekly [Concomitant]
  10. ondansetron 8mg tid prn n/v [Concomitant]
  11. prochlorperazine 10mg q6h prn N/V [Concomitant]
  12. sodium chloride 0.65% nasal spray prn [Concomitant]

REACTIONS (3)
  - Abdominal pain [None]
  - Hyperglycaemia [None]
  - Diabetes mellitus [None]

NARRATIVE: CASE EVENT DATE: 20240426
